FAERS Safety Report 14332563 (Version 1)
Quarter: 2017Q4

REPORT INFORMATION
  Report Type: Spontaneous
  Country: ZA (occurrence: ZA)
  Receive Date: 20171228
  Receipt Date: 20171228
  Transmission Date: 20180321
  Serious: Yes (Death)
  Sender: FDA-Public Use
  Company Number: ZA-BAYER-2017-244245

PATIENT
  Age: 71 Year
  Sex: Male

DRUGS (17)
  1. BAYER ASPIRIN CARDIO 100 MG [Suspect]
     Active Substance: ASPIRIN
     Dosage: UNK
     Dates: end: 2017
  2. CARLOC [Concomitant]
     Active Substance: CARVEDILOL
  3. GLICLAZIDE [Concomitant]
     Active Substance: GLICLAZIDE
  4. ANTISTAX [Concomitant]
     Active Substance: VITIS VINIFERA FLOWERING TOP
  5. CLOPAMON [Concomitant]
     Active Substance: METOCLOPRAMIDE
  6. PROCYDIN [Concomitant]
     Active Substance: CYPROHEPTADINE HYDROCHLORIDE
  7. LASIX [Concomitant]
     Active Substance: FUROSEMIDE
  8. FORTZAAR [Concomitant]
     Active Substance: HYDROCHLOROTHIAZIDE\LOSARTAN POTASSIUM
  9. TRAMACET [Concomitant]
     Active Substance: ACETAMINOPHEN\TRAMADOL
  10. TAPAZOL [Concomitant]
  11. DORMONOCT [Concomitant]
     Active Substance: LOPRAZOLAM
  12. FOLIC ACID. [Concomitant]
     Active Substance: FOLIC ACID
  13. CORDARONE [Concomitant]
     Active Substance: AMIODARONE HYDROCHLORIDE
  14. GLUCOPHAGE [Concomitant]
     Active Substance: METFORMIN HYDROCHLORIDE
  15. WARFARIN [Concomitant]
     Active Substance: WARFARIN
  16. ATORVASTATIN CALCIUM. [Concomitant]
     Active Substance: ATORVASTATIN CALCIUM
  17. LENAPAIN [Concomitant]
     Active Substance: ACETAMINOPHEN\CAFFEINE\CODEINE\DOXYLAMINE

REACTIONS (1)
  - Death [Fatal]

NARRATIVE: CASE EVENT DATE: 2017
